FAERS Safety Report 14032585 (Version 1)
Quarter: 2017Q4

REPORT INFORMATION
  Report Type: Spontaneous
  Country: AU (occurrence: AU)
  Receive Date: 20171003
  Receipt Date: 20171003
  Transmission Date: 20180321
  Serious: Yes (Disabling, Other)
  Sender: FDA-Public Use
  Company Number: AU-ACCORD-059449

PATIENT
  Age: 45 Year
  Sex: Male

DRUGS (5)
  1. MYCOPHENOLIC ACID. [Suspect]
     Active Substance: MYCOPHENOLIC ACID
     Indication: IMMUNOSUPPRESSANT DRUG THERAPY
  2. TACROLIMUS. [Interacting]
     Active Substance: TACROLIMUS
     Indication: IMMUNOSUPPRESSANT DRUG THERAPY
  3. PREDNISONE. [Suspect]
     Active Substance: PREDNISONE
     Indication: IMMUNOSUPPRESSANT DRUG THERAPY
  4. VANCOMYCIN [Concomitant]
     Active Substance: VANCOMYCIN
     Indication: SCEDOSPORIUM INFECTION
     Route: 042
  5. VORICONAZOLE. [Interacting]
     Active Substance: VORICONAZOLE
     Indication: SCEDOSPORIUM INFECTION
     Route: 048

REACTIONS (5)
  - Staphylococcal infection [Recovering/Resolving]
  - Drug interaction [Unknown]
  - Polyomavirus-associated nephropathy [Recovering/Resolving]
  - Scedosporium infection [Recovering/Resolving]
  - Osteomyelitis [Recovering/Resolving]
